FAERS Safety Report 19555622 (Version 1)
Quarter: 2021Q3

REPORT INFORMATION
  Report Type: Other
  Country: CH (occurrence: CH)
  Receive Date: 20210715
  Receipt Date: 20210715
  Transmission Date: 20211014
  Serious: Yes (Hospitalization)
  Sender: FDA-Public Use
  Company Number: CH-TOPROL-2021000143

PATIENT
  Age: 26 Year
  Sex: Male

DRUGS (8)
  1. QUETIAPINE XR [Suspect]
     Active Substance: QUETIAPINE
     Dosage: CUMULATIVE 300 MG DAILY OVER A PERIOD OF 5 DAYS IN THE EVENING
  2. METOPROLOL SUCCINATE) [Suspect]
     Active Substance: METOPROLOL SUCCINATE
     Dosage: QAM
     Route: 048
  3. LISINOPRIL. [Interacting]
     Active Substance: LISINOPRIL
  4. LISINOPRIL. [Interacting]
     Active Substance: LISINOPRIL
  5. METOPROLOL SUCCINATE) [Suspect]
     Active Substance: METOPROLOL SUCCINATE
     Dosage: ADMINISTERED IN TWO DOSES
     Route: 048
  6. ESCITALOPRAM [Interacting]
     Active Substance: ESCITALOPRAM OXALATE
     Dosage: 1?0?0?0
  7. QUETIAPINE. [Interacting]
     Active Substance: QUETIAPINE
     Dosage: 0?0?0?1
  8. ESCITALOPRAM [Interacting]
     Active Substance: ESCITALOPRAM OXALATE

REACTIONS (1)
  - Postural orthostatic tachycardia syndrome [Recovered/Resolved]
